FAERS Safety Report 12648777 (Version 11)
Quarter: 2017Q4

REPORT INFORMATION
  Report Type: Spontaneous
  Country: US (occurrence: US)
  Receive Date: 20160812
  Receipt Date: 20171030
  Transmission Date: 20180320
  Serious: Yes (Other)
  Sender: FDA-Public Use
  Company Number: US-PFIZER INC-2016340394

PATIENT
  Age: 76 Year
  Sex: Female
  Weight: 89.8 kg

DRUGS (12)
  1. IBRANCE [Suspect]
     Active Substance: PALBOCICLIB
     Dosage: 100 MG, CYCLIC (D1-21 Q28 DAYS)
     Route: 048
  2. ANASTROZOLE. [Concomitant]
     Active Substance: ANASTROZOLE
     Dosage: UNK
  3. IBRANCE [Suspect]
     Active Substance: PALBOCICLIB
     Dosage: 100 MG, CYCLIC (D1-21 Q 28 DAYS)
     Route: 048
     Dates: end: 201709
  4. IBRANCE [Suspect]
     Active Substance: PALBOCICLIB
     Indication: BREAST CANCER FEMALE
     Dosage: 125 MG, CYCLIC (D1-21Q28D)
     Route: 048
     Dates: start: 20160726
  5. IBRANCE [Suspect]
     Active Substance: PALBOCICLIB
     Dosage: 100 MG, CYCLIC, DAYS 1-21Q28 DAYS
     Route: 048
  6. FASLODEX [Concomitant]
     Active Substance: FULVESTRANT
     Dosage: UNK
  7. IBRANCE [Suspect]
     Active Substance: PALBOCICLIB
     Dosage: 125 MG, DAILY (EVERY 21 DAYS)
     Route: 048
  8. IBRANCE [Suspect]
     Active Substance: PALBOCICLIB
     Dosage: 100 MG, CYCLIC (D 1-21 Q 28 DAYS)
     Route: 048
  9. IBRANCE [Suspect]
     Active Substance: PALBOCICLIB
     Dosage: 100 MG, CYCLIC (D 1-21 Q 28 DAYS)
     Route: 048
  10. XGEVA [Concomitant]
     Active Substance: DENOSUMAB
     Dosage: UNK
  11. VIACTIV [Concomitant]
     Active Substance: CALCIUM\VITAMIN D\VITAMIN K5
     Dosage: UNK
  12. IBRANCE [Suspect]
     Active Substance: PALBOCICLIB
     Dosage: 100 MG, CYCLIC (DAY 1-21 Q28 DAYS)
     Route: 048
     Dates: start: 20160726

REACTIONS (35)
  - Heart rate decreased [Unknown]
  - Stent placement [Unknown]
  - Herpes zoster [Unknown]
  - Fatigue [Recovered/Resolved]
  - Pruritus [Unknown]
  - Pain in jaw [Unknown]
  - Neuralgia [Recovered/Resolved]
  - Blood triglycerides increased [Unknown]
  - Blood pressure inadequately controlled [Unknown]
  - Intervertebral disc disorder [Unknown]
  - Neck pain [Unknown]
  - Nasal congestion [Unknown]
  - Blood test abnormal [Unknown]
  - Dysphagia [Unknown]
  - Dyspnoea [Unknown]
  - Swelling [Unknown]
  - Condition aggravated [Unknown]
  - Blood potassium decreased [Unknown]
  - Hypoaesthesia [Unknown]
  - Abnormal weight gain [Unknown]
  - Myocardial infarction [Unknown]
  - Rhinorrhoea [Unknown]
  - Cardiac disorder [Unknown]
  - Hypertension [Unknown]
  - Stomatitis [Unknown]
  - Ear pain [Unknown]
  - Depression [Recovered/Resolved]
  - White blood cell count decreased [Unknown]
  - Toothache [Not Recovered/Not Resolved]
  - Anaemia [Unknown]
  - Lymphoedema [Unknown]
  - Dysphonia [Unknown]
  - Oral disorder [Unknown]
  - Formication [Unknown]
  - Nasopharyngitis [Unknown]

NARRATIVE: CASE EVENT DATE: 201607
